FAERS Safety Report 14775985 (Version 4)
Quarter: 2018Q3

REPORT INFORMATION
  Report Type: Report from Study
  Country: PE (occurrence: PE)
  Receive Date: 20180418
  Receipt Date: 20180912
  Transmission Date: 20181010
  Serious: Yes (Other)
  Sender: FDA-Public Use
  Company Number: PE-SA-2018SA056222

PATIENT
  Age: 27 Year
  Sex: Male

DRUGS (1)
  1. LEMTRADA [Suspect]
     Active Substance: ALEMTUZUMAB
     Indication: MULTIPLE SCLEROSIS
     Dosage: 12 MG,QD
     Route: 041
     Dates: start: 20170915, end: 20170919

REACTIONS (32)
  - Lymphocyte count decreased [Not Recovered/Not Resolved]
  - Influenza [Recovering/Resolving]
  - Blood bilirubin increased [Not Recovered/Not Resolved]
  - Blister [Recovered/Resolved]
  - Tonsillitis [Recovering/Resolving]
  - Blood bilirubin unconjugated increased [Not Recovered/Not Resolved]
  - Pruritus [Recovering/Resolving]
  - Pharyngitis [Recovering/Resolving]
  - Tremor [Recovering/Resolving]
  - Creatine urine decreased [Not Recovered/Not Resolved]
  - Globulins decreased [Not Recovered/Not Resolved]
  - Albumin globulin ratio increased [Unknown]
  - Urinary sediment present [Unknown]
  - Fungal skin infection [Recovering/Resolving]
  - Malaise [Recovering/Resolving]
  - Onychoclasis [Recovering/Resolving]
  - Occult blood positive [Recovered/Resolved]
  - Cough [Recovering/Resolving]
  - Diarrhoea [Recovering/Resolving]
  - Neutrophil count decreased [Not Recovered/Not Resolved]
  - Nasal congestion [Recovering/Resolving]
  - Oropharyngeal pain [Recovering/Resolving]
  - Bilirubin conjugated increased [Not Recovered/Not Resolved]
  - Leukopenia [Not Recovered/Not Resolved]
  - Eosinophil percentage increased [Not Recovered/Not Resolved]
  - Eosinophil count increased [Not Recovered/Not Resolved]
  - Leukocyturia [Unknown]
  - Red blood cells urine positive [Unknown]
  - Productive cough [Recovering/Resolving]
  - Hyperhidrosis [Recovering/Resolving]
  - Pain [Recovering/Resolving]
  - Poisoning [Recovering/Resolving]

NARRATIVE: CASE EVENT DATE: 201710
